FAERS Safety Report 6753178-9 (Version None)
Quarter: 2010Q2

REPORT INFORMATION
  Report Type: 
  Country: None (occurrence: None)
  Receive Date: 20100520
  Receipt Date: 20090916
  Transmission Date: 20101027
  Serious: Yes (Other)
  Sender: FDA-Public Use
  Company Number: 2009207432

PATIENT
  Age: 56 Year
  Sex: Female

DRUGS (6)
  1. PROVERA [Suspect]
     Indication: HORMONE REPLACEMENT THERAPY
     Dosage: 10 MG, ORAL
     Route: 048
     Dates: start: 19851001, end: 19900901
  2. PREMARIN [Suspect]
     Indication: HORMONE REPLACEMENT THERAPY
     Dosage: 0.625 PILL, ORAL; 0.3 MG
     Route: 048
     Dates: start: 19851001, end: 19870701
  3. PREMARIN [Suspect]
     Indication: HORMONE REPLACEMENT THERAPY
     Dosage: 0.625 PILL, ORAL; 0.3 MG
     Route: 048
     Dates: start: 19880801, end: 19900901
  4. PREMARIN [Suspect]
     Indication: HORMONE REPLACEMENT THERAPY
     Dosage: 0.625 PILL, ORAL; 0.3 MG
     Route: 048
     Dates: start: 19900901, end: 19981201
  5. ESTROGENS () TRANSDERMAL PATCH [Suspect]
     Indication: HORMONE REPLACEMENT THERAPY
     Dosage: 0.5 MG, TRANSDERMAL
     Route: 062
     Dates: start: 19870701, end: 19880801
  6. LISINOPRIL [Concomitant]

REACTIONS (1)
  - BREAST CANCER FEMALE [None]
